FAERS Safety Report 16406012 (Version 6)
Quarter: 2022Q2

REPORT INFORMATION
  Report Type: Spontaneous
  Country: US (occurrence: US)
  Receive Date: 20190607
  Receipt Date: 20220624
  Transmission Date: 20220721
  Serious: Yes (Other)
  Sender: FDA-Public Use
  Company Number: US-PFIZER INC-2019243279

PATIENT
  Age: 70 Year
  Sex: Female
  Weight: 70.295 kg

DRUGS (1)
  1. AMLODIPINE BESYLATE [Suspect]
     Active Substance: AMLODIPINE BESYLATE
     Indication: Hypertension
     Dosage: 1X/DAY, [EVERY DAY]

REACTIONS (4)
  - Lown-Ganong-Levine syndrome [Unknown]
  - Arrhythmia [Unknown]
  - Heart rate increased [Unknown]
  - Extrasystoles [Unknown]
